FAERS Safety Report 16356593 (Version 1)
Quarter: 2019Q2

REPORT INFORMATION
  Report Type: Spontaneous
  Country: GB (occurrence: GB)
  Receive Date: 20190527
  Receipt Date: 20190527
  Transmission Date: 20190711
  Serious: Yes (Other)
  Sender: FDA-Public Use
  Company Number: GB-SA-2019SA141949

PATIENT
  Age: 73 Year
  Sex: Male
  Weight: 80.5 kg

DRUGS (12)
  1. DULOXETINE. [Concomitant]
     Active Substance: DULOXETINE
  2. NOVOMIX [Concomitant]
     Active Substance: INSULIN ASPART
  3. MOXONIDINE [Concomitant]
     Active Substance: MOXONIDINE
  4. LISINOPRIL. [Concomitant]
     Active Substance: LISINOPRIL
  5. BETAHISTINE [Concomitant]
     Active Substance: BETAHISTINE
  6. ALIROCUMAB [Suspect]
     Active Substance: ALIROCUMAB
     Indication: HYPERCHOLESTEROLAEMIA
     Dosage: 75 MG, QOW
     Route: 058
     Dates: start: 20190307, end: 20190404
  7. FINASTERIDE. [Concomitant]
     Active Substance: FINASTERIDE
  8. BISOPROLOL [Concomitant]
     Active Substance: BISOPROLOL
  9. GLYCERYL TRINITRATE [Concomitant]
     Active Substance: NITROGLYCERIN
  10. AMLODIPINE [Concomitant]
     Active Substance: AMLODIPINE BESYLATE
  11. ISOSORBIDE MONONITRATE. [Concomitant]
     Active Substance: ISOSORBIDE MONONITRATE
  12. AMITRIPTYLINE [Concomitant]
     Active Substance: AMITRIPTYLINE

REACTIONS (1)
  - Hypertension [Recovering/Resolving]

NARRATIVE: CASE EVENT DATE: 20190404
